FAERS Safety Report 14377099 (Version 1)
Quarter: 2018Q1

REPORT INFORMATION
  Report Type: Spontaneous
  Country: US (occurrence: US)
  Receive Date: 20180111
  Receipt Date: 20180111
  Transmission Date: 20180509
  Serious: No
  Sender: FDA-Public Use
  Company Number: US-DRREDDYS-USA/USA/16/0085527

PATIENT
  Sex: Male
  Weight: 103.42 kg

DRUGS (5)
  1. HABITROL [Suspect]
     Active Substance: NICOTINE
     Route: 061
     Dates: start: 2016
  2. HABITROL [Suspect]
     Active Substance: NICOTINE
     Indication: SMOKING CESSATION THERAPY
     Route: 062
     Dates: start: 201602
  3. TERAZOSIN [Concomitant]
     Active Substance: TERAZOSIN\TERAZOSIN HYDROCHLORIDE
     Indication: PRODUCT USED FOR UNKNOWN INDICATION
     Route: 065
  4. ASPIRIN. [Concomitant]
     Active Substance: ASPIRIN
     Indication: NASOPHARYNGITIS
     Route: 065
  5. HABITROL [Suspect]
     Active Substance: NICOTINE
     Route: 061

REACTIONS (9)
  - Product quality issue [Unknown]
  - Nicotine dependence [Unknown]
  - Urticaria [Recovered/Resolved]
  - Application site erythema [Recovered/Resolved]
  - Treatment noncompliance [Unknown]
  - Application site irritation [Recovered/Resolved]
  - Overdose [Unknown]
  - Application site pain [Recovered/Resolved]
  - Drug ineffective [Unknown]
